FAERS Safety Report 19941096 (Version 1)
Quarter: 2021Q4

REPORT INFORMATION
  Report Type: Spontaneous
  Country: DE (occurrence: DE)
  Receive Date: 20211012
  Receipt Date: 20211012
  Transmission Date: 20220303
  Serious: Yes (Death, Other)
  Sender: FDA-Public Use
  Company Number: DE-SUN PHARMACEUTICAL INDUSTRIES LTD-2021R1-313288

PATIENT
  Age: 55 Year
  Sex: Male

DRUGS (2)
  1. MIRTAZAPINE [Suspect]
     Active Substance: MIRTAZAPINE
     Indication: Progressive multifocal leukoencephalopathy
     Dosage: 60 MILLIGRAM, DAILY
     Route: 065
  2. MEFLOQUINE [Suspect]
     Active Substance: MEFLOQUINE
     Indication: Progressive multifocal leukoencephalopathy
     Dosage: 250 MILLIGRAM, WEEKLY
     Route: 065

REACTIONS (3)
  - Amaurosis [Unknown]
  - Disease progression [Fatal]
  - Visual acuity reduced [Unknown]

NARRATIVE: CASE EVENT DATE: 20190401
